FAERS Safety Report 15428244 (Version 2)
Quarter: 2018Q4

REPORT INFORMATION
  Report Type: Spontaneous
  Country: FR (occurrence: FR)
  Receive Date: 20180926
  Receipt Date: 20181026
  Transmission Date: 20190204
  Serious: Yes (Death, Hospitalization, Other)
  Sender: FDA-Public Use
  Company Number: FR-AUROBINDO-AUR-APL-2018-046990

PATIENT
  Age: 3 Year
  Sex: Male

DRUGS (5)
  1. PARACETAMOL [Suspect]
     Active Substance: ACETAMINOPHEN
     Indication: PYREXIA
  2. PARACETAMOL [Suspect]
     Active Substance: ACETAMINOPHEN
     Indication: ORAL HERPES
     Dosage: UNK
     Route: 065
  3. TRAMADOL. [Suspect]
     Active Substance: TRAMADOL
     Indication: PYREXIA
  4. TRAMADOL. [Suspect]
     Active Substance: TRAMADOL
     Indication: ORAL HERPES
     Dosage: UNK
     Route: 065
  5. DIAZEPAM. [Concomitant]
     Active Substance: DIAZEPAM
     Indication: PRODUCT USED FOR UNKNOWN INDICATION
     Dosage: UNK
     Route: 065

REACTIONS (13)
  - Apnoea [Fatal]
  - Tachycardia [Fatal]
  - Hypertension [Fatal]
  - Hypertonia [Fatal]
  - Hypoxia [Fatal]
  - Toxicity to various agents [Unknown]
  - Cardiac arrest [Fatal]
  - Overdose [Fatal]
  - Balance disorder [Fatal]
  - Dyspnoea [Fatal]
  - Hepatocellular injury [Fatal]
  - Decreased eye contact [Fatal]
  - Product use issue [Fatal]
